FAERS Safety Report 13067472 (Version 1)
Quarter: 2016Q4

REPORT INFORMATION
  Report Type: Spontaneous
  Country: IT (occurrence: IT)
  Receive Date: 20161228
  Receipt Date: 20161228
  Transmission Date: 20170207
  Serious: Yes (Hospitalization)
  Sender: FDA-Public Use
  Company Number: IT-009507513-1612ITA010312

PATIENT
  Age: 53 Year
  Sex: Female

DRUGS (7)
  1. MIRTAZAPINE. [Suspect]
     Active Substance: MIRTAZAPINE
     Indication: INTENTIONAL SELF-INJURY
     Dosage: 5 DOSE UNITS, ONCE
     Route: 048
     Dates: start: 20161112, end: 20161112
  2. TAVOR (LORAZEPAM) [Suspect]
     Active Substance: LORAZEPAM
     Indication: INTENTIONAL SELF-INJURY
     Dosage: ONCE
     Route: 048
     Dates: start: 20161112, end: 20161112
  3. CONTROL (LORAZEPAM) [Suspect]
     Active Substance: LORAZEPAM
     Indication: INTENTIONAL SELF-INJURY
     Dosage: ONCE
     Route: 048
     Dates: start: 20161112, end: 20161112
  4. VALDORM [Concomitant]
     Active Substance: VALERIAN
     Route: 048
  5. PRINZIDE [Suspect]
     Active Substance: HYDROCHLOROTHIAZIDE\LISINOPRIL
     Indication: INTENTIONAL SELF-INJURY
     Dosage: 20MG + 12.5 MG TABLET, 11 DOSE UNITS, ONCE
     Route: 048
     Dates: start: 20161112, end: 20161112
  6. DEPAKIN [Suspect]
     Active Substance: VALPROATE SODIUM
     Indication: INTENTIONAL SELF-INJURY
     Dosage: 6000 MG, ONCE
     Route: 048
     Dates: start: 20161112, end: 20161112
  7. XANAX [Suspect]
     Active Substance: ALPRAZOLAM
     Indication: INTENTIONAL SELF-INJURY
     Dosage: ONCE
     Route: 048
     Dates: start: 20161112, end: 20161112

REACTIONS (4)
  - Drug abuse [Unknown]
  - Sopor [Unknown]
  - Poisoning [Unknown]
  - Intentional self-injury [Unknown]

NARRATIVE: CASE EVENT DATE: 20161112
